FAERS Safety Report 5506129-9 (Version None)
Quarter: 2007Q4

REPORT INFORMATION
  Report Type: 
  Country: None (occurrence: None)
  Receive Date: 20071101
  Receipt Date: 20070614
  Transmission Date: 20080405
  Serious: No
  Sender: FDA-Public Use
  Company Number: 2007S1004676

PATIENT
  Age: 15 Year
  Sex: Female
  Weight: 77.1115 kg

DRUGS (1)
  1. AMNESTEEM [Suspect]
     Dosage: 40 MG; TWICE A DAY; ORAL
     Route: 048
     Dates: start: 20070212, end: 20070601

REACTIONS (2)
  - DRUG EXPOSURE DURING PREGNANCY [None]
  - PREGNANCY [None]
